FAERS Safety Report 12753464 (Version 1)
Quarter: 2016Q3

REPORT INFORMATION
  Report Type: Spontaneous
  Country: US (occurrence: US)
  Receive Date: 20160916
  Receipt Date: 20160916
  Transmission Date: 20161109
  Serious: Yes (Hospitalization)
  Sender: FDA-Public Use
  Company Number: US-PFIZER INC-2016420210

PATIENT
  Age: 69 Year
  Sex: Female

DRUGS (34)
  1. IBRANCE [Suspect]
     Active Substance: PALBOCICLIB
     Indication: BREAST CANCER METASTATIC
     Dosage: 75 MG, CYCLIC (21 DAY CYCLE; 28 DAY SUPPLY)
  2. FEMARA [Suspect]
     Active Substance: LETROZOLE
     Indication: BREAST CANCER METASTATIC
     Dosage: 2.5 MG, DAILY (1 TABLET DAILY)
     Route: 048
     Dates: start: 20150814
  3. ONDANSETRON HCL [Concomitant]
     Active Substance: ONDANSETRON HYDROCHLORIDE
     Dosage: 8 MG, AS NEEDED (TID)
     Route: 048
     Dates: start: 20150814
  4. BENAZEPRIL HCL [Concomitant]
     Active Substance: BENAZEPRIL HYDROCHLORIDE
     Dosage: UNK, DAILY
     Route: 048
     Dates: start: 20140425, end: 20160729
  5. FEMARA [Suspect]
     Active Substance: LETROZOLE
     Indication: ADRENAL GLAND CANCER METASTATIC
  6. XGEVA [Suspect]
     Active Substance: DENOSUMAB
     Indication: METASTASES TO BONE
  7. VITAMIN B6 [Concomitant]
     Active Substance: PYRIDOXINE HYDROCHLORIDE
     Dosage: UNK UNK, DAILY
     Dates: start: 20140425
  8. VITAMIN C [Concomitant]
     Active Substance: ASCORBIC ACID
     Dosage: 500 MG, DAILY
     Dates: start: 20140425
  9. ALTEPLASE [Concomitant]
     Active Substance: ALTEPLASE
     Dosage: UNK, SINGLE  (2 MG (OF 1MG/ML)
     Route: 042
     Dates: start: 20160205, end: 20160205
  10. AMOXICILLIN + CLAV. POTASSIUM [Concomitant]
     Dosage: 1 DF, 2X/DAY (AMOXICILLIN TRIHYDRATE-875MG/CLAVULANATE POTASSIUM-125MG) (1 TAB BID FOR 7 DAYS)
     Route: 048
     Dates: start: 20151009, end: 20151030
  11. COENZYME Q10 [Concomitant]
     Active Substance: UBIDECARENONE
     Dosage: 100 MG, DAILY
     Dates: start: 20140425
  12. ACETAMINOPHEN. [Concomitant]
     Active Substance: ACETAMINOPHEN
     Dosage: 500 MG, 1X/DAY
     Route: 048
     Dates: start: 20151009, end: 20151009
  13. PRAVASTATIN SODIUM. [Concomitant]
     Active Substance: PRAVASTATIN SODIUM
     Dosage: UNK UNK, DAILY
     Route: 048
     Dates: start: 20140425, end: 20150805
  14. IBRANCE [Suspect]
     Active Substance: PALBOCICLIB
     Indication: ADRENAL GLAND CANCER METASTATIC
     Dosage: 125 MG, DAILY
     Route: 048
     Dates: start: 20150814
  15. FEMARA [Suspect]
     Active Substance: LETROZOLE
     Indication: METASTASES TO BONE
  16. FEMARA [Suspect]
     Active Substance: LETROZOLE
     Indication: METASTASES TO LUNG
  17. LORAZEPAM. [Concomitant]
     Active Substance: LORAZEPAM
     Dosage: 0.5 MG, UNK (AS DIRECTED)
     Route: 048
     Dates: start: 20151207
  18. ONDANSETRON HCL [Concomitant]
     Active Substance: ONDANSETRON HYDROCHLORIDE
     Dosage: 8 MG, AS NEEDED (BID)
     Route: 048
     Dates: start: 20150814
  19. IBRANCE [Suspect]
     Active Substance: PALBOCICLIB
     Indication: METASTASES TO LUNG
     Dosage: 75 MG, DAILY (AS DIRECTED)
     Route: 048
     Dates: start: 20150911
  20. CANNABIS SATIVA OIL [Concomitant]
     Active Substance: CANNABIS SATIVA SUBSP. INDICA TOP
     Dosage: UNK
  21. HEPARIN [Concomitant]
     Active Substance: HEPARIN SODIUM
     Dosage: 100 IU/ML, SINGLE (5 ML)
     Route: 042
     Dates: start: 20160108
  22. SILVADENE [Concomitant]
     Active Substance: SILVER SULFADIAZINE
     Dosage: 1 %, UNK (AS DIRECTED)
     Route: 061
     Dates: start: 20140715, end: 20140904
  23. CELEXA [Concomitant]
     Active Substance: CITALOPRAM HYDROBROMIDE
     Dosage: UNK
  24. HYDROCHLOROTHIAZIDE. [Concomitant]
     Active Substance: HYDROCHLOROTHIAZIDE
     Dosage: UNK UNK, DAILY
     Route: 048
     Dates: start: 20140425, end: 20160729
  25. ESCITALOPRAM OXALATE. [Concomitant]
     Active Substance: ESCITALOPRAM OXALATE
     Dosage: 20 MG, DAILY
     Route: 048
     Dates: start: 20140425
  26. ZOLEDRONIC ACID [Concomitant]
     Active Substance: ZOLEDRONIC ACID
     Dosage: UNK
     Dates: start: 20151009
  27. IBRANCE [Suspect]
     Active Substance: PALBOCICLIB
     Indication: METASTASES TO BONE
     Dosage: 75 MG, DAILY
     Route: 048
  28. XGEVA [Suspect]
     Active Substance: DENOSUMAB
     Indication: BREAST CANCER METASTATIC
     Dosage: UNK UNK, MONTHLY
  29. XGEVA [Suspect]
     Active Substance: DENOSUMAB
     Indication: ADRENAL GLAND CANCER METASTATIC
     Dosage: 120 MG, SINGLE (OF 120MG/1.70 ML)
     Route: 058
     Dates: start: 20151106, end: 20160729
  30. XGEVA [Suspect]
     Active Substance: DENOSUMAB
     Indication: METASTASES TO LUNG
  31. VITAMIN D [Concomitant]
     Active Substance: CHOLECALCIFEROL
     Dosage: 4000 IU, DAILY
     Dates: start: 20140425
  32. ESCITALOPRAM OXALATE. [Concomitant]
     Active Substance: ESCITALOPRAM OXALATE
     Dosage: 20 MG, DAILY
     Route: 048
     Dates: start: 20151023
  33. ANASTROZOLE. [Concomitant]
     Active Substance: ANASTROZOLE
     Dosage: UNK UNK, DAILY
     Route: 048
     Dates: start: 20140904, end: 20150805
  34. TAMOXIFEN CITRATE. [Concomitant]
     Active Substance: TAMOXIFEN CITRATE
     Dosage: 20 MG, DAILY
     Route: 048
     Dates: start: 20140904, end: 20140905

REACTIONS (6)
  - Lymphoedema [Unknown]
  - Blood pressure abnormal [Recovering/Resolving]
  - White blood cell count decreased [Unknown]
  - Pyrexia [Unknown]
  - Pain in extremity [Recovering/Resolving]
  - Post procedural oedema [Recovering/Resolving]
